FAERS Safety Report 9937136 (Version 1)
Quarter: 2014Q1

REPORT INFORMATION
  Report Type: Spontaneous
  Country: US (occurrence: US)
  Receive Date: 20140301
  Receipt Date: 20140301
  Transmission Date: 20141002
  Serious: Yes (Other)
  Sender: FDA-Public Use
  Company Number: US-ROCHE-1352330

PATIENT
  Age: 49 Year
  Sex: Female
  Weight: 49.7 kg

DRUGS (12)
  1. RITUXAN [Suspect]
     Indication: B-CELL LYMPHOMA
     Route: 042
     Dates: start: 20140206
  2. HYDROCODONE HCL [Concomitant]
     Indication: NECK PAIN
     Dosage: 10/325 AS NEEDED UP TO 4 TIMES A DAY
     Route: 048
  3. BENADRYL (UNITED STATES) [Concomitant]
  4. TYLENOL [Concomitant]
     Route: 048
     Dates: start: 20140206, end: 20140206
  5. DIPHENHYDRAMINE HCL [Concomitant]
     Route: 042
     Dates: start: 20140206, end: 20140206
  6. ADDERALL XR [Concomitant]
     Indication: DEPRESSION
     Route: 048
  7. IBUPROFEN [Concomitant]
     Dosage: 2 TABS AS REQUIRED
     Route: 048
     Dates: start: 20140204
  8. BOTOX [Concomitant]
     Indication: PAIN
     Route: 058
  9. MARINOL (UNITED STATES) [Concomitant]
     Indication: NAUSEA
     Route: 048
  10. VALIUM [Concomitant]
     Indication: NAUSEA
     Route: 048
     Dates: start: 20140220
  11. VALIUM [Concomitant]
     Indication: ANXIETY
  12. ZANTAC [Concomitant]

REACTIONS (7)
  - Loss of consciousness [Recovered/Resolved]
  - Hypertension [Recovered/Resolved]
  - Heart rate increased [Recovered/Resolved]
  - Chest pain [Recovered/Resolved]
  - Tachycardia [Not Recovered/Not Resolved]
  - Syncope [Recovered/Resolved]
  - Headache [Recovered/Resolved]
